FAERS Safety Report 8905367 (Version 1)
Quarter: 2012Q4

REPORT INFORMATION
  Report Type: 
  Country: US (occurrence: US)
  Receive Date: 20121112
  Receipt Date: 20121112
  Transmission Date: 20130627
  Serious: Yes (Hospitalization)
  Sender: FDA-Public Use
  Company Number: US-BAYER-2012-116937

PATIENT
  Age: 20 Year
  Sex: Female
  Weight: 58.64 kg

DRUGS (8)
  1. YASMIN [Suspect]
  2. ADVAIR [Concomitant]
     Dosage: twice per day
     Route: 045
  3. PREDNISONE [Concomitant]
     Indication: ASTHMA
     Dosage: 40 mg, ONCE
     Route: 048
  4. ALBUTEROL [Concomitant]
     Dosage: every 2 hours
  5. ZITHROMAX [Concomitant]
     Dosage: 250 mg 2 times 1 day, then 1 every day 4 times a days
  6. ROBITUSSIN AC [CODEINE PHOSPHATE,GUAIFENESIN] [Concomitant]
  7. IBUPROFEN [Concomitant]
     Dosage: 600 mg, TID
     Route: 048
  8. VICODIN [Concomitant]
     Indication: PAIN
     Dosage: 5-500 mg every 4-6 hours
     Route: 048

REACTIONS (1)
  - Pulmonary embolism [None]
